FAERS Safety Report 12201846 (Version 2)
Quarter: 2016Q2

REPORT INFORMATION
  Report Type: Spontaneous
  Country: DE (occurrence: DE)
  Receive Date: 20160322
  Receipt Date: 20160421
  Transmission Date: 20160815
  Serious: Yes (Hospitalization, Disabling, Other)
  Sender: FDA-Public Use
  Company Number: DE-ABBVIE-16K-062-1586358-00

PATIENT
  Age: 26 Year
  Sex: Female

DRUGS (5)
  1. NOVAMINSULFON [Concomitant]
     Active Substance: METAMIZOLE
     Indication: PAIN
     Dates: start: 2013
  2. FRESUBIN [Concomitant]
     Active Substance: AMINO ACIDS\DEXTROSE\ELECTROLYTES NOS\SOYBEAN OIL\VITAMINS
     Indication: UNDERWEIGHT
     Dosage: 200-400 ML PER DAY
     Dates: start: 2013, end: 2014
  3. HUMIRA [Suspect]
     Active Substance: ADALIMUMAB
     Indication: CROHN^S DISEASE
     Route: 058
     Dates: start: 20131017, end: 201602
  4. AZATHIOPRIN [Concomitant]
     Active Substance: AZATHIOPRINE
     Indication: PRODUCT USED FOR UNKNOWN INDICATION
     Dates: start: 2009
  5. PREDNISOLON [Concomitant]
     Active Substance: PREDNISOLONE
     Indication: CROHN^S DISEASE
     Dosage: 100 OR 80 MILLIGRAM PER DAY
     Route: 048
     Dates: start: 20160225

REACTIONS (14)
  - Vomiting [Unknown]
  - Abdominal pain [Recovering/Resolving]
  - Pyrexia [Recovered/Resolved]
  - Infection [Recovered/Resolved]
  - Crohn^s disease [Unknown]
  - Erythema [Recovered/Resolved]
  - Pyrexia [Recovered/Resolved]
  - Volvulus [Unknown]
  - Headache [Recovered/Resolved]
  - Rhinitis [Recovered/Resolved]
  - Lactose intolerance [Unknown]
  - Frequent bowel movements [Unknown]
  - Intestinal perforation [Recovered/Resolved]
  - Abdominal pain [Unknown]

NARRATIVE: CASE EVENT DATE: 20140304
